FAERS Safety Report 11830604 (Version 1)
Quarter: 2015Q4

REPORT INFORMATION
  Report Type: Spontaneous
  Country: DK (occurrence: DK)
  Receive Date: 20151214
  Receipt Date: 20151214
  Transmission Date: 20160305
  Serious: Yes (Death)
  Sender: FDA-Public Use
  Company Number: DK-HOSPIRA-3102672

PATIENT

DRUGS (3)
  1. CISPLATIN. [Suspect]
     Active Substance: CISPLATIN
     Indication: GERM CELL NEOPLASM
     Dosage: ON DAYS 1 AND 8 EVERY 3 WEEKS FOR A MAXIMUM OF 6 CYCLES
     Route: 042
  2. GEMCITABINE HYDROCHLORIDE. [Suspect]
     Active Substance: GEMCITABINE HYDROCHLORIDE
     Indication: GERM CELL NEOPLASM
     Dosage: ON DAYS 1 AND 8 EVERY 3 WEEKS FOR A MAXIMUM OF 6 CYCLES
     Route: 042
  3. PACLITAXEL. [Suspect]
     Active Substance: PACLITAXEL
     Indication: GERM CELL NEOPLASM
     Dosage: ON DAYS 1 AND 8 EVERY 3 WEEKS FOR A MAXIMUM OF 6 CYCLES
     Route: 042

REACTIONS (1)
  - Death [Fatal]
